FAERS Safety Report 5532621-7 (Version None)
Quarter: 2007Q4

REPORT INFORMATION
  Report Type: 
  Country: None (occurrence: None)
  Receive Date: 20071203
  Receipt Date: 20071129
  Transmission Date: 20080405
  Serious: Yes (Other)
  Sender: FDA-Public Use
  Company Number: DE-BOEHRINGER INGELHEIM PHARMACEUTICALS, INC.-2007-DE-06949DE

PATIENT
  Age: 81 Year
  Sex: Male

DRUGS (1)
  1. SIFROL 0,088 MG [Suspect]
     Indication: RESTLESS LEGS SYNDROME

REACTIONS (2)
  - PHOTOPSIA [None]
  - RETINAL DISORDER [None]
